FAERS Safety Report 13266398 (Version 2)
Quarter: 2017Q1

REPORT INFORMATION
  Report Type: Spontaneous
  Country: FR (occurrence: FR)
  Receive Date: 20170223
  Receipt Date: 20170314
  Transmission Date: 20170428
  Serious: Yes (Hospitalization, Other)
  Sender: FDA-Public Use
  Company Number: FR-GILEAD-2017-0256273

PATIENT
  Age: 73 Year
  Sex: Male
  Weight: 69 kg

DRUGS (6)
  1. ZYDELIG [Suspect]
     Active Substance: IDELALISIB
     Dosage: 100 1 IN THE MORNING
     Route: 065
  2. SPIRIVA [Concomitant]
     Active Substance: TIOTROPIUM BROMIDE MONOHYDRATE
     Dosage: WHEN NEEDED
  3. CLAIRYG [Concomitant]
     Active Substance: HUMAN IMMUNOGLOBULIN G
  4. ZYDELIG [Suspect]
     Active Substance: IDELALISIB
     Indication: CHRONIC LYMPHOCYTIC LEUKAEMIA
     Dosage: UNK
     Route: 065
  5. SERETIDE [Concomitant]
     Active Substance: FLUTICASONE PROPIONATE\SALMETEROL XINAFOATE
     Dosage: WHEN NEEDED
  6. VENTOLINE                          /00139501/ [Concomitant]
     Active Substance: ALBUTEROL
     Dosage: WHEN NEEDED

REACTIONS (6)
  - Hypokalaemia [Unknown]
  - Congestive cardiomyopathy [Unknown]
  - Superinfection [Unknown]
  - Acute pulmonary oedema [Unknown]
  - Hypertensive crisis [Unknown]
  - Hyperaldosteronism [Unknown]

NARRATIVE: CASE EVENT DATE: 20170131
